FAERS Safety Report 8684517 (Version 2)
Quarter: 2013Q3

REPORT INFORMATION
  Report Type: Report from Study
  Country: DE (occurrence: DE)
  Receive Date: 20120726
  Receipt Date: 20130725
  Transmission Date: 20140515
  Serious: Yes (Hospitalization, Other)
  Sender: FDA-Public Use
  Company Number: DE-ROCHE-1082962

PATIENT
  Age: 64 Year
  Sex: Female
  Weight: 69.4 kg

DRUGS (12)
  1. BEVACIZUMAB [Suspect]
     Indication: BRAIN NEOPLASM MALIGNANT
     Dosage: LAST DOSE PRIOR TO SAE: 19/JUL/2012
     Route: 042
     Dates: start: 20111208
  2. IRINOTECAN [Suspect]
     Indication: BRAIN NEOPLASM MALIGNANT
     Route: 042
     Dates: start: 20120203
  3. DEXAMETHASONE [Concomitant]
     Route: 065
     Dates: start: 20111118
  4. PANTAZOL [Concomitant]
     Route: 065
     Dates: start: 20111117, end: 20111216
  5. L-THYROXINE [Concomitant]
     Route: 065
     Dates: start: 20111117
  6. L-THYROXINE [Concomitant]
     Route: 065
     Dates: start: 20111117
  7. FRAXIPARIN [Concomitant]
     Route: 065
     Dates: start: 20111117, end: 20111216
  8. HYLO-COMOD [Concomitant]
     Dosage: DROPS/ML
     Route: 065
     Dates: start: 2009
  9. COTRIM FORTE [Concomitant]
     Route: 065
     Dates: start: 20120203, end: 20120209
  10. COTRIM FORTE [Concomitant]
     Route: 065
     Dates: start: 20120527, end: 20120531
  11. TRIAMCINOLON [Concomitant]
     Route: 065
     Dates: start: 20120216, end: 20120217
  12. KEPPRA [Concomitant]
     Route: 065
     Dates: start: 20120426

REACTIONS (2)
  - Status epilepticus [Recovered/Resolved]
  - Partial seizures [Recovered/Resolved]
